FAERS Safety Report 18130953 (Version 1)
Quarter: 2020Q3

REPORT INFORMATION
  Report Type: Report from Study
  Country: US (occurrence: US)
  Receive Date: 20200810
  Receipt Date: 20200810
  Transmission Date: 20201103
  Serious: Yes (Other)
  Sender: FDA-Public Use
  Company Number: US-ACTELION-A-NJ2017-152417

PATIENT
  Age: 64 Year
  Sex: Female
  Weight: 99.77 kg

DRUGS (3)
  1. REVATIO [Concomitant]
     Active Substance: SILDENAFIL CITRATE
  2. OPSUMIT [Suspect]
     Active Substance: MACITENTAN
     Indication: PULMONARY ARTERIAL HYPERTENSION
     Dosage: 10 MG, QD
     Route: 048
     Dates: start: 20150331
  3. VENTAVIS [Suspect]
     Active Substance: ILOPROST
     Indication: PULMONARY ARTERIAL HYPERTENSION
     Dosage: 5 MCG, 6?9 TIMES DAILY
     Route: 055

REACTIONS (11)
  - Weight decreased [Unknown]
  - Nasal congestion [Not Recovered/Not Resolved]
  - Feeling abnormal [Unknown]
  - Skin infection [Unknown]
  - Hypoxia [Not Recovered/Not Resolved]
  - Spinal nerve stimulator implantation [Unknown]
  - Compression fracture [Unknown]
  - Upper respiratory tract infection [Not Recovered/Not Resolved]
  - Nasal septal operation [Unknown]
  - Infected cyst [Unknown]
  - Cough [Not Recovered/Not Resolved]

NARRATIVE: CASE EVENT DATE: 201606
